FAERS Safety Report 15573714 (Version 1)
Quarter: 2018Q4

REPORT INFORMATION
  Report Type: Report from Study
  Country: NL (occurrence: NL)
  Receive Date: 20181101
  Receipt Date: 20181101
  Transmission Date: 20190205
  Serious: Yes (Hospitalization, Other)
  Sender: FDA-Public Use
  Company Number: NL-IPSEN BIOPHARMACEUTICALS, INC.-2018-16145

PATIENT
  Age: 57 Year
  Sex: Female

DRUGS (2)
  1. SOMATULINE AUTOSOLUTION 120MG [Suspect]
     Active Substance: LANREOTIDE ACETATE
     Dosage: DOSE NOT REPORTED, INJECTION SITE: BUTTOCK AND THIGH.
     Route: 058
     Dates: start: 20180920
  2. SOMATULINE AUTOSOLUTION 120MG [Suspect]
     Active Substance: LANREOTIDE ACETATE
     Indication: PRODUCT USED FOR UNKNOWN INDICATION
     Dosage: ALTERNATELY IN THE BUTTOCK AND THE THIGH
     Route: 058
     Dates: start: 20161215

REACTIONS (4)
  - Fall [Unknown]
  - Injection site pain [Recovered/Resolved]
  - Myocardial infarction [Unknown]
  - Malaise [Unknown]

NARRATIVE: CASE EVENT DATE: 20170506
